FAERS Safety Report 4970971-3 (Version None)
Quarter: 2006Q2

REPORT INFORMATION
  Report Type: 
  Country: None (occurrence: None)
  Receive Date: 20060411
  Receipt Date: 20060411
  Transmission Date: 20061013
  Serious: Yes (Disabling)
  Sender: FDA-Public Use
  Company Number: None

PATIENT
  Age: 58 Year
  Sex: Female
  Weight: 70.3075 kg

DRUGS (3)
  1. ZICAM NASAL GEL SPRAY MATRIXX INIATIVES, INC [Suspect]
     Indication: SINUS DISORDER
     Dosage: 2 DROPS EVERY 12 HRS SINUS-006?
     Dates: start: 20060123, end: 20060130
  2. AMOXICILLIN [Concomitant]
  3. STEROID SHOT [Concomitant]

REACTIONS (1)
  - ANOSMIA [None]
